FAERS Safety Report 4719123-2 (Version None)
Quarter: 2005Q3

REPORT INFORMATION
  Report Type: 
  Country: None (occurrence: None)
  Receive Date: 20050719
  Receipt Date: 20050630
  Transmission Date: 20060218
  Serious: Yes (Life-Threatening, Hospitalization)
  Sender: FDA-Public Use
  Company Number: DE_050716337

PATIENT
  Sex: Male

DRUGS (3)
  1. GEMZAR [Suspect]
     Indication: BRONCHIAL CARCINOMA
     Dosage: 1000 MG/M2
     Dates: start: 20050301
  2. CARBOPLATIN [Concomitant]
  3. THEOPHYLLINE [Concomitant]

REACTIONS (2)
  - ALCOHOL WITHDRAWAL SYNDROME [None]
  - SUPRAVENTRICULAR TACHYCARDIA [None]
